FAERS Safety Report 8252151-1 (Version None)
Quarter: 2012Q2

REPORT INFORMATION
  Report Type: 
  Country: None (occurrence: None)
  Receive Date: 20120402
  Receipt Date: 20110617
  Transmission Date: 20120825
  Serious: No
  Sender: FDA-Public Use
  Company Number: US-ABBOTT-11P-163-0733540-00

PATIENT
  Sex: Male
  Weight: 59.02 kg

DRUGS (9)
  1. LEVAQUIN [Suspect]
     Indication: LARYNGITIS
     Route: 048
     Dates: start: 20110527, end: 20110531
  2. ASPIRIN [Concomitant]
     Indication: PROPHYLAXIS
     Route: 048
  3. ANDROGEL [Suspect]
     Indication: BLOOD TESTOSTERONE DECREASED
     Dosage: ONE PACKET ONCE DAILY
     Route: 062
     Dates: start: 20110122
  4. ZETIA [Concomitant]
     Indication: BLOOD CHOLESTEROL INCREASED
     Route: 048
  5. TERAZOSIN HCL [Concomitant]
     Indication: HYPERTENSION
     Route: 048
  6. XANAX [Concomitant]
     Indication: INSOMNIA
     Dosage: DAILY AT BEDTIME
     Route: 048
  7. CIPROFLOXACIN [Suspect]
     Indication: LARYNGITIS
     Route: 048
     Dates: start: 20110531, end: 20110603
  8. PRAVASTATIN [Concomitant]
     Indication: BLOOD CHOLESTEROL INCREASED
     Route: 048
  9. LISINOPRIL [Concomitant]
     Indication: HYPERTENSION
     Route: 048

REACTIONS (3)
  - DIARRHOEA [None]
  - LARYNGITIS [None]
  - TENDONITIS [None]
